FAERS Safety Report 9559811 (Version 1)
Quarter: 2013Q3

REPORT INFORMATION
  Report Type: Spontaneous
  Country: BE (occurrence: BE)
  Receive Date: 20130927
  Receipt Date: 20130927
  Transmission Date: 20140515
  Serious: Yes (Other)
  Sender: FDA-Public Use
  Company Number: BE-BAYER-2013-113203

PATIENT
  Age: 86 Year
  Sex: Male

DRUGS (2)
  1. CIPROFLOXACIN [Suspect]
     Dosage: 800 MG, QD
     Route: 048
  2. METRONIDAZOLE [Suspect]
     Indication: INFECTION
     Dosage: 1.5 MG, QD
     Route: 048

REACTIONS (4)
  - Binocular eye movement disorder [Not Recovered/Not Resolved]
  - Cerebellar syndrome [Not Recovered/Not Resolved]
  - Neuropathy peripheral [Not Recovered/Not Resolved]
  - Nystagmus [Not Recovered/Not Resolved]
